FAERS Safety Report 21724028 (Version 1)
Quarter: 2022Q4

REPORT INFORMATION
  Report Type: Spontaneous
  Country: US (occurrence: None)
  Receive Date: 20221212
  Receipt Date: 20221212
  Transmission Date: 20230113
  Serious: No
  Sender: FDA-Public Use
  Company Number: None

PATIENT
  Sex: Female

DRUGS (1)
  1. FORTEO [Suspect]
     Active Substance: TERIPARATIDE
     Indication: Osteoporosis
     Dosage: OTHER STRENGTH : 250MCG/ML ;?OTHER QUANTITY : 20MCG;?FREQUENCY : DAILY;?
     Route: 058
     Dates: start: 202211

REACTIONS (4)
  - Injection site bruising [None]
  - Injection site pain [None]
  - Injection site pain [None]
  - Device malfunction [None]
